FAERS Safety Report 7030316-4 (Version None)
Quarter: 2010Q4

REPORT INFORMATION
  Report Type: 
  Country: None (occurrence: None)
  Receive Date: 20101006
  Receipt Date: 20100924
  Transmission Date: 20110411
  Serious: Yes (Hospitalization)
  Sender: FDA-Public Use
  Company Number: DE-JNJFOC-20100908087

PATIENT
  Sex: Male
  Weight: 33.2 kg

DRUGS (10)
  1. REMICADE [Suspect]
     Indication: CROHN'S DISEASE
     Route: 042
  2. 5-ASA [Concomitant]
     Route: 048
  3. OMEPRAZOLE [Concomitant]
  4. CALCILAC [Concomitant]
  5. VIANI [Concomitant]
  6. DESLORATADINE [Concomitant]
     Indication: HYPERSENSITIVITY
  7. SALBUTAMOL [Concomitant]
     Route: 055
  8. MONTELUKAST [Concomitant]
  9. DEXAMETHASONE [Concomitant]
     Route: 047
  10. ANTIBIOTICS [Concomitant]
     Indication: CROHN'S DISEASE

REACTIONS (1)
  - STAPHYLOCOCCAL INFECTION [None]
